FAERS Safety Report 8282433-9 (Version None)
Quarter: 2012Q2

REPORT INFORMATION
  Report Type: 
  Country: None (occurrence: None)
  Receive Date: 20120410
  Receipt Date: 20120328
  Transmission Date: 20120825
  Serious: Yes (Hospitalization, Other)
  Sender: FDA-Public Use
  Company Number: AUR-APL-2012-01163

PATIENT
  Age: 25 Year
  Sex: Male
  Weight: 68.93 kg

DRUGS (3)
  1. AMOXICILLIN [Suspect]
     Indication: CHRONIC SINUSITIS
     Dosage: 1500 MG (500 MG,3 IN 1 D), ORAL : (500 MG), ORAL
     Route: 048
     Dates: start: 20111205, end: 20111216
  2. AMOXICILLIN [Suspect]
     Indication: CHRONIC SINUSITIS
     Dosage: 1500 MG (500 MG,3 IN 1 D), ORAL : (500 MG), ORAL
     Route: 048
     Dates: start: 20111216
  3. MECLIZINE [Concomitant]

REACTIONS (29)
  - PAIN IN JAW [None]
  - SOFT TISSUE DISORDER [None]
  - TENDONITIS [None]
  - SKIN DISCOLOURATION [None]
  - TINNITUS [None]
  - SWELLING FACE [None]
  - ABDOMINAL PAIN UPPER [None]
  - PARAESTHESIA [None]
  - GENERAL PHYSICAL CONDITION ABNORMAL [None]
  - WEIGHT DECREASED [None]
  - HYPOAESTHESIA [None]
  - CHRONIC SINUSITIS [None]
  - NEUROPATHY PERIPHERAL [None]
  - RASH [None]
  - OEDEMA PERIPHERAL [None]
  - PRODUCT QUALITY ISSUE [None]
  - DEPRESSION [None]
  - PRODUCT SUBSTITUTION ISSUE [None]
  - EYE DISORDER [None]
  - INFECTION [None]
  - URETHRAL PAIN [None]
  - VIITH NERVE PARALYSIS [None]
  - SENSORY DISTURBANCE [None]
  - TENSION HEADACHE [None]
  - PRODUCT COUNTERFEIT [None]
  - FACIAL ASYMMETRY [None]
  - UNEVALUABLE EVENT [None]
  - CONDITION AGGRAVATED [None]
  - FUNGAL INFECTION [None]
